FAERS Safety Report 6039002-0 (Version None)
Quarter: 2009Q1

REPORT INFORMATION
  Report Type: 
  Country: None (occurrence: None)
  Receive Date: 20090115
  Receipt Date: 20090110
  Transmission Date: 20090719
  Serious: Yes (Hospitalization)
  Sender: FDA-Public Use
  Company Number: US-ASTRAZENECA-2009UW00839

PATIENT
  Age: 91 Year
  Sex: Male

DRUGS (4)
  1. SEROQUEL [Suspect]
     Indication: CONFUSIONAL STATE
     Route: 048
     Dates: start: 20090110, end: 20090110
  2. SEROQUEL [Suspect]
     Indication: AGITATION
     Route: 048
     Dates: start: 20090110, end: 20090110
  3. ZYPREXA [Suspect]
     Indication: CONFUSIONAL STATE
     Dates: start: 20090109
  4. ZYPREXA [Suspect]
     Indication: AGITATION
     Dates: start: 20090109

REACTIONS (9)
  - AGGRESSION [None]
  - BLOOD PRESSURE INCREASED [None]
  - CONFUSIONAL STATE [None]
  - DRY MOUTH [None]
  - DYSKINESIA [None]
  - HALLUCINATION, AUDITORY [None]
  - HALLUCINATION, VISUAL [None]
  - PARANOIA [None]
  - URINARY TRACT INFECTION [None]
